FAERS Safety Report 25759580 (Version 2)
Quarter: 2025Q3

REPORT INFORMATION
  Report Type: Spontaneous
  Country: US (occurrence: US)
  Receive Date: 20250904
  Receipt Date: 20250926
  Transmission Date: 20251020
  Serious: No
  Sender: BIOVITRUM
  Company Number: US-BIOVITRUM-2025-US-011834

PATIENT
  Age: 72 Year
  Sex: Male

DRUGS (1)
  1. KINERET [Suspect]
     Active Substance: ANAKINRA
     Indication: Immune thrombocytopenia
     Route: 065

REACTIONS (3)
  - Hand deformity [Unknown]
  - Intentional product misuse [Unknown]
  - Pain in extremity [Unknown]
